FAERS Safety Report 9279942 (Version 1)
Quarter: 2013Q2

REPORT INFORMATION
  Report Type: Spontaneous
  Country: US (occurrence: US)
  Receive Date: 20130509
  Receipt Date: 20130509
  Transmission Date: 20140414
  Serious: No
  Sender: FDA-Public Use
  Company Number: US-BIOGENIDEC-2013BI041714

PATIENT
  Sex: Male

DRUGS (1)
  1. TYSABRI [Suspect]
     Indication: MULTIPLE SCLEROSIS
     Route: 042
     Dates: start: 20080918

REACTIONS (7)
  - Mobility decreased [Not Recovered/Not Resolved]
  - Fall [Recovered/Resolved]
  - Rotator cuff syndrome [Recovered/Resolved]
  - Vertigo [Recovered/Resolved with Sequelae]
  - Dysstasia [Recovered/Resolved]
  - Stress [Recovered/Resolved]
  - Temperature intolerance [Recovered/Resolved with Sequelae]
